FAERS Safety Report 9670219 (Version 2)
Quarter: 2014Q1

REPORT INFORMATION
  Report Type: Spontaneous
  Country: GB (occurrence: GB)
  Receive Date: 20131105
  Receipt Date: 20140213
  Transmission Date: 20141002
  Serious: Yes (Hospitalization)
  Sender: FDA-Public Use
  Company Number: PHHY2013GB122545

PATIENT
  Age: 74 Year
  Sex: 0

DRUGS (27)
  1. FILGRASTIM [Suspect]
     Indication: PRODUCT USED FOR UNKNOWN INDICATION
     Route: 058
  2. BENDROFLUMETHIAZIDE [Suspect]
     Indication: PRODUCT USED FOR UNKNOWN INDICATION
     Route: 048
     Dates: end: 20130831
  3. ALLOPURINOL [Suspect]
     Indication: HYPERURICAEMIA
     Route: 048
     Dates: start: 20130817, end: 20130902
  4. RITUXIMAB [Suspect]
     Indication: NON-HODGKIN^S LYMPHOMA
     Route: 041
     Dates: start: 20130805, end: 20130805
  5. RANITIDINE [Concomitant]
     Route: 050
     Dates: start: 20130831
  6. PARACETAMOL [Concomitant]
     Route: 048
  7. NYSTATIN [Concomitant]
     Route: 061
  8. MOXONIDINE [Concomitant]
     Route: 048
     Dates: end: 20130831
  9. METOCLOPRAMIDE [Concomitant]
     Route: 048
  10. METHOTREXATE [Concomitant]
     Route: 037
     Dates: start: 20130815, end: 20130815
  11. METFORMIN [Concomitant]
     Route: 048
  12. LOSARTAN [Concomitant]
     Route: 048
  13. LANSOPRAZOLE [Concomitant]
     Route: 048
     Dates: end: 20130831
  14. FLUCONAZOLE [Concomitant]
     Route: 048
  15. ENOXAPARIN [Concomitant]
  16. CLOPIDOGREL [Concomitant]
     Route: 048
  17. BENZYDAMINE [Concomitant]
     Route: 061
  18. ATORVASTATIN [Concomitant]
     Route: 048
  19. ASPIRIN [Concomitant]
     Route: 048
  20. AMLODIPINE [Concomitant]
     Dosage: 10 MG, QD
     Route: 048
     Dates: end: 20130831
  21. PIPERACILLIN AND TAZOBACTAM [Concomitant]
     Route: 040
  22. MEROPENEM [Concomitant]
     Route: 040
  23. CYCLOPHOSPHAMIDE [Concomitant]
     Indication: NON-HODGKIN^S LYMPHOMA
     Route: 041
     Dates: start: 20130805, end: 20130805
  24. VINCRISTINE [Concomitant]
     Indication: NON-HODGKIN^S LYMPHOMA
     Route: 041
     Dates: start: 20130805, end: 20130805
  25. DOXORUBICIN [Concomitant]
     Indication: NON-HODGKIN^S LYMPHOMA
     Route: 041
     Dates: start: 20130805, end: 20130805
  26. PREDNISOLONE [Concomitant]
  27. ONCOVIN [Concomitant]
     Route: 065
     Dates: start: 20130805, end: 20130805

REACTIONS (13)
  - Neutrophilic dermatosis [Unknown]
  - Pneumonia [Unknown]
  - Mucous membrane disorder [Unknown]
  - Livedo reticularis [Unknown]
  - Abscess [Unknown]
  - Extravasation blood [Unknown]
  - Acanthosis [Unknown]
  - Skin oedema [Unknown]
  - Nodule [Unknown]
  - Rash pustular [Unknown]
  - Skin lesion [Unknown]
  - Rash [Unknown]
  - Skin ulcer [Unknown]
